FAERS Safety Report 10059958 (Version 5)
Quarter: 2014Q2

REPORT INFORMATION
  Report Type: Spontaneous
  Country: US (occurrence: US)
  Receive Date: 20140404
  Receipt Date: 20140602
  Transmission Date: 20141212
  Serious: Yes (Hospitalization, Disabling)
  Sender: FDA-Public Use
  Company Number: US-ENDO PHARMACEUTICALS INC.-HYDR20140011

PATIENT
  Age: 43 Year
  Sex: Female
  Weight: 50.85 kg

DRUGS (6)
  1. HYDROCORTISONE TABLETS 10MG [Suspect]
     Indication: ADDISON^S DISEASE
     Route: 048
     Dates: start: 20140108, end: 20140402
  2. HYDROCORTISONE TABLETS 10MG [Suspect]
     Route: 048
     Dates: start: 20131029
  3. HYDROCORTISONE TABLETS 10MG [Suspect]
     Route: 048
     Dates: start: 2012, end: 2013
  4. HYDROCORTISONE TABLETS 10MG [Suspect]
     Route: 048
     Dates: start: 2010
  5. HYDROCORTISONE TABLETS 10MG [Concomitant]
     Indication: ADDISON^S DISEASE
     Route: 048
     Dates: start: 20140403
  6. HYDROCORTISONE TABLETS 10MG [Concomitant]
     Route: 048
     Dates: end: 20140107

REACTIONS (4)
  - Condition aggravated [Recovered/Resolved]
  - Addison^s disease [Recovered/Resolved]
  - Chest pain [Recovered/Resolved]
  - Drug ineffective [Recovered/Resolved]
